FAERS Safety Report 7327934-2 (Version None)
Quarter: 2011Q1

REPORT INFORMATION
  Report Type: 
  Country: None (occurrence: None)
  Receive Date: 20110303
  Receipt Date: 20110221
  Transmission Date: 20110831
  Serious: Yes (Hospitalization)
  Sender: FDA-Public Use
  Company Number: US-JNJFOC-20101108146

PATIENT
  Sex: Female

DRUGS (4)
  1. PEPCID [Concomitant]
     Route: 065
  2. DOXIL [Suspect]
     Indication: OVARIAN CANCER METASTATIC
     Dosage: 5 CYCLES
     Route: 042
  3. FRAGMIN [Concomitant]
     Route: 065
  4. FOSAMAX [Concomitant]
     Route: 065

REACTIONS (4)
  - PULMONARY EMBOLISM [None]
  - ASCITES [None]
  - URINARY TRACT INFECTION [None]
  - DYSPNOEA [None]
